FAERS Safety Report 8418711-X (Version None)
Quarter: 2012Q2

REPORT INFORMATION
  Report Type: 
  Country: None (occurrence: None)
  Receive Date: 20120607
  Receipt Date: 20120531
  Transmission Date: 20120825
  Serious: Yes (Other)
  Sender: FDA-Public Use
  Company Number: US-BAYER-2012-055010

PATIENT
  Age: 52 Year

DRUGS (19)
  1. KLONOPIN [Concomitant]
     Dosage: 1 MG, TID
  2. SEROQUEL [Concomitant]
     Dosage: 100 MG, HS
  3. LEVOTHYROXINE SODIUM [Concomitant]
     Dosage: 100 MG, QD
  4. ESTROGEN [Concomitant]
     Dosage: 1 DF, QOD
  5. SPIRIVA [Concomitant]
  6. CELEXA [Concomitant]
     Dosage: 40 MG, QD
  7. CLARINEX [Concomitant]
     Dosage: DAILY DOSE 10 MG
  8. SYMBICORT [Concomitant]
     Dosage: 2 DF, BID
  9. ADDERALL 5 [Concomitant]
     Dosage: 30 MG, TID
  10. ASPIRIN [Suspect]
  11. PHENYTOIN [Concomitant]
     Dosage: 100 MG, HS
  12. VITAMIN B-12 [Concomitant]
     Dosage: 100 MG, QD
  13. LAXATIVES [Concomitant]
     Dosage: 8 MG, QD
  14. BIOTENE [Concomitant]
     Dosage: DAILY DOSE 2 DF
  15. VENTOLIN [Concomitant]
     Dosage: 2 DF, PRN
  16. VITAMIN D [Concomitant]
     Dosage: 1 DF, QD
  17. ACETAMINOPHEN [Concomitant]
     Dosage: 1 DF, QID
  18. PROTONIX [Concomitant]
     Dosage: 40 MG, QD
  19. KOMBIGLYZE XR [Concomitant]
     Dosage: 5MG/1000MG

REACTIONS (1)
  - ULCER HAEMORRHAGE [None]
